FAERS Safety Report 25101933 (Version 1)
Quarter: 2025Q1

REPORT INFORMATION
  Report Type: Spontaneous
  Country: US (occurrence: US)
  Receive Date: 20250320
  Receipt Date: 20250320
  Transmission Date: 20250408
  Serious: No
  Sender: PURDUE
  Company Number: US-PURDUE-USA-2025-0316157

PATIENT
  Sex: Female

DRUGS (1)
  1. ACETAMINOPHEN\OXYCODONE HYDROCHLORIDE [Suspect]
     Active Substance: ACETAMINOPHEN\OXYCODONE HYDROCHLORIDE
     Indication: Analgesic therapy
     Route: 048

REACTIONS (8)
  - Condition aggravated [Recovered/Resolved]
  - Illness [Unknown]
  - Influenza like illness [Unknown]
  - Migraine [Recovered/Resolved]
  - Nausea [Recovered/Resolved]
  - Fatigue [Unknown]
  - Inadequate analgesia [Unknown]
  - Product substitution issue [Unknown]
